FAERS Safety Report 4930182-4 (Version None)
Quarter: 2006Q1

REPORT INFORMATION
  Report Type: 
  Country: None (occurrence: None)
  Receive Date: 20060228
  Receipt Date: 20060215
  Transmission Date: 20060701
  Serious: Yes (Other)
  Sender: FDA-Public Use
  Company Number: A-CH2006-11453

PATIENT
  Age: 62 Year
  Sex: Female

DRUGS (5)
  1. TRACLEER [Suspect]
     Indication: ATRIAL SEPTAL DEFECT
     Dosage: SEE IMAGE
     Route: 048
     Dates: start: 20051017, end: 20051101
  2. TRACLEER [Suspect]
     Indication: ATRIAL SEPTAL DEFECT
     Dosage: SEE IMAGE
     Route: 048
     Dates: start: 20051101, end: 20060110
  3. MARCUMAR [Concomitant]
  4. BISOPROLOL (BISOPROLOL) [Concomitant]
  5. TOREM (TORASEMIDE) [Concomitant]

REACTIONS (3)
  - ALANINE AMINOTRANSFERASE INCREASED [None]
  - ASPARTATE AMINOTRANSFERASE INCREASED [None]
  - GAMMA-GLUTAMYLTRANSFERASE INCREASED [None]
